FAERS Safety Report 10131646 (Version 3)
Quarter: 2014Q3

REPORT INFORMATION
  Report Type: Spontaneous
  Country: AT (occurrence: AT)
  Receive Date: 20140428
  Receipt Date: 20140825
  Transmission Date: 20150326
  Serious: Yes (Other)
  Sender: FDA-Public Use
  Company Number: AT-PFIZER INC-2014113742

PATIENT
  Age: 3 Year
  Sex: Male
  Weight: 17 kg

DRUGS (2)
  1. OTREON [Suspect]
     Active Substance: CEFPODOXIME
     Indication: ACUTE TONSILLITIS
     Dosage: 5 ML, 3X/DAY (100 MG/5 ML)
     Route: 048
     Dates: start: 20140205, end: 20140207
  2. CECLOR [Suspect]
     Active Substance: CEFACLOR
     Indication: ACUTE TONSILLITIS
     Dosage: 5 ML, 3X/DAY
     Route: 048
     Dates: start: 20140208, end: 20140209

REACTIONS (4)
  - Overdose [Recovered/Resolved]
  - Arthritis [Recovered/Resolved]
  - Pain [Recovered/Resolved]
  - Rash vesicular [Recovered/Resolved]

NARRATIVE: CASE EVENT DATE: 201402
